FAERS Safety Report 13113092 (Version 6)
Quarter: 2017Q3

REPORT INFORMATION
  Report Type: Spontaneous
  Country: KR (occurrence: KR)
  Receive Date: 20170113
  Receipt Date: 20170824
  Transmission Date: 20171127
  Serious: Yes (Hospitalization, Other)
  Sender: FDA-Public Use
  Company Number: KR-009507513-1701KOR004753

PATIENT
  Age: 72 Year
  Sex: Male

DRUGS (58)
  1. CISPLAN [Concomitant]
     Active Substance: CISPLATIN
     Dosage: 76 MG, ONCE, CYCLE 3, (STRENGTH 50MG/100ML)
     Route: 042
     Dates: start: 20161029, end: 20161029
  2. DEXAMETHASONE SODIUM PHOSPHATE. [Concomitant]
     Active Substance: DEXAMETHASONE SODIUM PHOSPHATE
     Dosage: 10 MG, ONCE
     Route: 042
     Dates: start: 20161029, end: 20161029
  3. EMEND (FOSAPREPITANT DIMEGLUMINE) [Suspect]
     Active Substance: FOSAPREPITANT DIMEGLUMINE
     Indication: PROPHYLAXIS OF NAUSEA AND VOMITING
     Dosage: 150 MG, ONCE
     Route: 042
     Dates: start: 20160712, end: 20160712
  4. CISPLAN [Concomitant]
     Active Substance: CISPLATIN
     Dosage: 76 MG, ONCE, CYCLE 4, STRENGTH 50MG/100ML)
     Route: 042
     Dates: start: 20161205, end: 20161205
  5. VELBE [Concomitant]
     Active Substance: VINBLASTINE SULFATE
     Dosage: 3.2 MG, ONCE, CYCLE 3
     Route: 042
     Dates: start: 20161104, end: 20161114
  6. UNITREXATE [Concomitant]
     Active Substance: METHOTREXATE
     Dosage: 32 MG, QD, CYCLE 2, )(STRENGTH: 50MG/2ML)
     Route: 042
     Dates: start: 20160816, end: 20160818
  7. UNITREXATE [Concomitant]
     Active Substance: METHOTREXATE
     Dosage: 32 MG, ONCE, CYCLE 2, )(STRENGTH: 50MG/2ML)
     Route: 042
     Dates: start: 20160906, end: 20160906
  8. DEXAMETHASONE SODIUM PHOSPHATE. [Concomitant]
     Active Substance: DEXAMETHASONE SODIUM PHOSPHATE
     Dosage: 10 MG, ONCE
     Route: 042
     Dates: start: 20160906, end: 20160906
  9. DEXAMETHASONE SODIUM PHOSPHATE. [Concomitant]
     Active Substance: DEXAMETHASONE SODIUM PHOSPHATE
     Dosage: 10 MG, ONCE
     Route: 042
     Dates: start: 20161219, end: 20161219
  10. CISPLAN [Concomitant]
     Active Substance: CISPLATIN
     Indication: BLADDER CANCER
     Dosage: 76 MG, ONCE (CYCLE 1) (STRENGTH 50MG/100ML)
     Route: 042
     Dates: start: 20160712, end: 20160712
  11. VELBE [Concomitant]
     Active Substance: VINBLASTINE SULFATE
     Dosage: 3.2 MG, ONCE, CYCLE 3
     Route: 042
     Dates: start: 20161029, end: 20161029
  12. UNITREXATE [Concomitant]
     Active Substance: METHOTREXATE
     Dosage: 32 MG, ONCE, CYCLE 4 (STRENGTH: 50MG/2ML)
     Route: 042
     Dates: start: 20161205, end: 20161205
  13. DEXAMETHASONE SODIUM PHOSPHATE. [Concomitant]
     Active Substance: DEXAMETHASONE SODIUM PHOSPHATE
     Dosage: 10 MG, ONCE
     Route: 042
     Dates: start: 20161205, end: 20161205
  14. ALOXI [Concomitant]
     Active Substance: PALONOSETRON HYDROCHLORIDE
     Dosage: 0.25 MG, ONCE
     Route: 042
     Dates: start: 20161029, end: 20161029
  15. ALOXI [Concomitant]
     Active Substance: PALONOSETRON HYDROCHLORIDE
     Dosage: 0.25 MG, ONCE
     Route: 042
     Dates: start: 20161205, end: 20161205
  16. FOLIC ACID. [Concomitant]
     Active Substance: FOLIC ACID
     Indication: VITAMIN SUPPLEMENTATION
     Dosage: 1 MG (1 TABLET), QD
     Route: 048
     Dates: start: 20160712, end: 20160920
  17. STILNOX [Concomitant]
     Active Substance: ZOLPIDEM TARTRATE
     Indication: PROPHYLAXIS
     Dosage: 10 MG, QD
     Route: 048
     Dates: start: 20160712, end: 20160721
  18. VELBE [Concomitant]
     Active Substance: VINBLASTINE SULFATE
     Dosage: 3.2 MG, ONCE, CYCLE 4,
     Route: 042
     Dates: start: 20161205, end: 20161205
  19. DOXORUBICIN HYDROCHLORIDE. [Concomitant]
     Active Substance: DOXORUBICIN HYDROCHLORIDE
     Dosage: 32 MG, ONCE, CYCLE 4
     Route: 042
     Dates: start: 20161205, end: 20161205
  20. DEXAMETHASONE SODIUM PHOSPHATE. [Concomitant]
     Active Substance: DEXAMETHASONE SODIUM PHOSPHATE
     Dosage: 10 MG, ONCE
     Route: 042
     Dates: start: 20160818, end: 20160818
  21. MAGMIL [Concomitant]
     Active Substance: MAGNESIUM HYDROXIDE
     Indication: CONSTIPATION PROPHYLAXIS
     Dosage: 500 MG (1 TABLET), TID
     Route: 048
     Dates: start: 20160712, end: 20161031
  22. TYLENOL EXTENDED RELIEF CAPLETS [Concomitant]
     Active Substance: ACETAMINOPHEN
     Dosage: 650 MG (1 TABLET), ONCE
     Dates: start: 20160719, end: 20160719
  23. EMEND (FOSAPREPITANT DIMEGLUMINE) [Suspect]
     Active Substance: FOSAPREPITANT DIMEGLUMINE
     Dosage: 150 MG, ONCE
     Route: 042
     Dates: start: 20160818, end: 20160818
  24. VELBE [Concomitant]
     Active Substance: VINBLASTINE SULFATE
     Dosage: 3.2 MG, ONCE, CYCLE 2
     Route: 042
     Dates: start: 20160906, end: 20160906
  25. VELBE [Concomitant]
     Active Substance: VINBLASTINE SULFATE
     Dosage: 32 MG, ONCE, CYCLE 3
     Route: 042
     Dates: start: 20061121, end: 20061121
  26. DOXORUBICIN HYDROCHLORIDE. [Concomitant]
     Active Substance: DOXORUBICIN HYDROCHLORIDE
     Indication: BLADDER CANCER
     Dosage: 32 MG, ONCE (CYCLE 1)
     Route: 042
     Dates: start: 20160712, end: 20160712
  27. DOXORUBICIN HYDROCHLORIDE. [Concomitant]
     Active Substance: DOXORUBICIN HYDROCHLORIDE
     Dosage: 32 MG, ONCE, CYCLE 3
     Route: 042
     Dates: start: 20161029, end: 20161029
  28. UNITREXATE [Concomitant]
     Active Substance: METHOTREXATE
     Dosage: 32 MG, ONCE, CYCLE 3, )(STRENGTH: 50MG/2ML)
     Route: 042
     Dates: start: 20161114, end: 20161114
  29. UNITREXATE [Concomitant]
     Active Substance: METHOTREXATE
     Dosage: 32 MG, ONCE, CYCLE 4
     Route: 042
     Dates: start: 20161219, end: 20161219
  30. DEXAMETHASONE SODIUM PHOSPHATE. [Concomitant]
     Active Substance: DEXAMETHASONE SODIUM PHOSPHATE
     Dosage: 10 MG, ONCE
     Route: 042
     Dates: start: 20161114, end: 20161114
  31. DEXAMETHASONE SODIUM PHOSPHATE. [Concomitant]
     Active Substance: DEXAMETHASONE SODIUM PHOSPHATE
     Dosage: 10 MG, ONCE
     Route: 042
     Dates: start: 20161121, end: 20161121
  32. ALOXI [Concomitant]
     Active Substance: PALONOSETRON HYDROCHLORIDE
     Dosage: 0.25 MG, ONCE
     Route: 042
     Dates: start: 20160818, end: 20160818
  33. LASIX [Concomitant]
     Active Substance: FUROSEMIDE
     Dosage: 20 MG, ONCE, (STRENGTH: 20MG/2ML)
     Route: 042
     Dates: start: 20160818, end: 20160818
  34. PHAZYME COMPLEX [Concomitant]
     Indication: PROPHYLAXIS
     Dosage: 1 TABLET, TID
     Route: 048
     Dates: start: 20160712, end: 20161219
  35. TYLENOL EXTENDED RELIEF CAPLETS [Concomitant]
     Active Substance: ACETAMINOPHEN
     Indication: PAIN PROPHYLAXIS
     Dosage: 650 MG (1 TABLET), TID
     Route: 048
     Dates: start: 20160713, end: 20160715
  36. EMEND (FOSAPREPITANT DIMEGLUMINE) [Suspect]
     Active Substance: FOSAPREPITANT DIMEGLUMINE
     Dosage: 150 MG, ONCE
     Route: 042
     Dates: start: 20161029, end: 20161029
  37. VELBE [Concomitant]
     Active Substance: VINBLASTINE SULFATE
     Dosage: 3.2 MG, ONCE, CYCLE 2
     Route: 042
     Dates: start: 20160818, end: 20160818
  38. DOXORUBICIN HYDROCHLORIDE. [Concomitant]
     Active Substance: DOXORUBICIN HYDROCHLORIDE
     Dosage: 32 MG, ONCE, CYCLE 2
     Route: 042
     Dates: start: 20160818, end: 20160818
  39. UNITREXATE [Concomitant]
     Active Substance: METHOTREXATE
     Dosage: 32 MG, ONCE, CYCLE 3, )(STRENGTH: 50MG/2ML)
     Route: 042
     Dates: start: 20161029, end: 20161029
  40. ALOXI [Concomitant]
     Active Substance: PALONOSETRON HYDROCHLORIDE
     Indication: PROPHYLAXIS OF NAUSEA AND VOMITING
     Dosage: 0.25 MG, ONCE (CYCLE 1)
     Route: 042
     Dates: start: 20160712, end: 20160712
  41. LASIX [Concomitant]
     Active Substance: FUROSEMIDE
     Indication: PROPHYLAXIS
     Dosage: 20 MG, ONCE (STRENGTH: 20MG/2ML)
     Route: 042
     Dates: start: 20160712, end: 20160712
  42. LASIX [Concomitant]
     Active Substance: FUROSEMIDE
     Dosage: 20 MG, ONCE, (STRENGTH: 20MG/2ML)
     Route: 042
     Dates: start: 20161029, end: 20161029
  43. MACPERAN [Concomitant]
     Active Substance: METOCLOPRAMIDE HYDROCHLORIDE
     Indication: PROPHYLAXIS OF NAUSEA AND VOMITING
     Dosage: 1 TABLET, TID
     Route: 048
     Dates: start: 20160712, end: 20161004
  44. VELBE [Concomitant]
     Active Substance: VINBLASTINE SULFATE
     Indication: BLADDER CANCER
     Dosage: 3.2 MG, ONCE (CYCLE 1)
     Route: 042
     Dates: start: 20160712, end: 20160712
  45. VELBE [Concomitant]
     Active Substance: VINBLASTINE SULFATE
     Dosage: 3.2 MG, ONCE, CYCLE 1
     Route: 042
     Dates: start: 20160802, end: 20160802
  46. VELBE [Concomitant]
     Active Substance: VINBLASTINE SULFATE
     Dosage: 3.2 MG, ONCE, CYCLE 4
     Route: 042
     Dates: start: 20161219, end: 20161219
  47. UNITREXATE [Concomitant]
     Active Substance: METHOTREXATE
     Indication: BLADDER CANCER
     Dosage: 32 MG, ONCE (CYCLE 1)(STRENGTH: 50MG/2ML)
     Route: 042
     Dates: start: 20160712, end: 20160712
  48. UNITREXATE [Concomitant]
     Active Substance: METHOTREXATE
     Dosage: 32 MG, ONCE, CYCLE 2, )(STRENGTH: 50MG/2ML)
     Route: 042
     Dates: start: 20160830, end: 20160830
  49. DEXAMETHASONE SODIUM PHOSPHATE. [Concomitant]
     Active Substance: DEXAMETHASONE SODIUM PHOSPHATE
     Indication: PROPHYLAXIS OF NAUSEA AND VOMITING
     Dosage: 10 MG, ONCE
     Route: 042
     Dates: start: 20160712, end: 20160712
  50. DEXAMETHASONE SODIUM PHOSPHATE. [Concomitant]
     Active Substance: DEXAMETHASONE SODIUM PHOSPHATE
     Dosage: 10 MG, ONCE
     Route: 042
     Dates: start: 20160816, end: 20160816
  51. DEXAMETHASONE SODIUM PHOSPHATE. [Concomitant]
     Active Substance: DEXAMETHASONE SODIUM PHOSPHATE
     Dosage: 10 MG, ONCE
     Route: 042
     Dates: start: 20160830, end: 20160830
  52. LASIX [Concomitant]
     Active Substance: FUROSEMIDE
     Dosage: 20 MG, ONCE, (STRENGTH: 20MG/2ML)
     Route: 042
     Dates: start: 20161205, end: 20161205
  53. EMEND (FOSAPREPITANT DIMEGLUMINE) [Suspect]
     Active Substance: FOSAPREPITANT DIMEGLUMINE
     Dosage: 150 MG, ONCE
     Route: 042
     Dates: start: 20161205, end: 20161205
  54. CISPLAN [Concomitant]
     Active Substance: CISPLATIN
     Dosage: 76 MG, ONCE, CYCLE 1, (STRENGTH 50MG/100ML)
     Route: 042
     Dates: start: 20160818, end: 20160818
  55. VELBE [Concomitant]
     Active Substance: VINBLASTINE SULFATE
     Dosage: 3.2 MG, ONCE, CYCLE 2
     Route: 042
     Dates: start: 20160830, end: 20160830
  56. UNITREXATE [Concomitant]
     Active Substance: METHOTREXATE
     Dosage: 32 MG, ONCE, CYCLE 1, )(STRENGTH: 50MG/2ML)
     Route: 042
     Dates: start: 20160802, end: 20160802
  57. UNITREXATE [Concomitant]
     Active Substance: METHOTREXATE
     Dosage: 32 MG, ONCE, CYCLE 3 )(STRENGTH: 50MG/2ML)
     Route: 042
     Dates: start: 20161121, end: 20161121
  58. DEXAMETHASONE SODIUM PHOSPHATE. [Concomitant]
     Active Substance: DEXAMETHASONE SODIUM PHOSPHATE
     Dosage: 10 MG, ONCE
     Route: 042
     Dates: start: 20160802, end: 20160802

REACTIONS (6)
  - Haematuria [Recovered/Resolved]
  - Upper respiratory tract infection [Recovered/Resolved]
  - Malignant neoplasm progression [Recovered/Resolved]
  - Pyrexia [Recovered/Resolved]
  - Abdominal pain [Recovered/Resolved]
  - Diarrhoea [Recovered/Resolved]

NARRATIVE: CASE EVENT DATE: 20160716
